FAERS Safety Report 10842350 (Version 1)
Quarter: 2015Q1

REPORT INFORMATION
  Report Type: Spontaneous
  Country: US (occurrence: US)
  Receive Date: 20150220
  Receipt Date: 20150220
  Transmission Date: 20150721
  Serious: No
  Sender: FDA-Public Use
  Company Number: US-PFIZER INC-2015061006

PATIENT
  Age: 64 Year

DRUGS (1)
  1. SILDENAFIL CITRATE. [Suspect]
     Active Substance: SILDENAFIL CITRATE
     Dosage: 20 MG TABLET,  1 TABLET BY ORAL ROUTE 2 TIMES EVERY DAY
     Route: 048

REACTIONS (2)
  - Dizziness [Unknown]
  - Drug hypersensitivity [Unknown]
